FAERS Safety Report 13047405 (Version 2)
Quarter: 2017Q1

REPORT INFORMATION
  Report Type: Spontaneous
  Country: CA (occurrence: CA)
  Receive Date: 20161220
  Receipt Date: 20170116
  Transmission Date: 20170428
  Serious: Yes (Life-Threatening, Other)
  Sender: FDA-Public Use
  Company Number: CA-SYMPLMED PHARMACEUTICALS-2016SYMPLMED000380

PATIENT

DRUGS (1)
  1. COVERSYL [Suspect]
     Active Substance: PERINDOPRIL
     Indication: HYPERTENSION
     Dosage: 4 MG, QD
     Route: 048
     Dates: start: 20140715, end: 20160831

REACTIONS (2)
  - General physical health deterioration [Recovered/Resolved]
  - Angioedema [Recovered/Resolved]

NARRATIVE: CASE EVENT DATE: 20160831
